FAERS Safety Report 9041508 (Version 1)
Quarter: 2013Q1

REPORT INFORMATION
  Report Type: Report from Study
  Country: US (occurrence: US)
  Receive Date: 20130129
  Receipt Date: 20130129
  Transmission Date: 20140127
  Serious: No
  Sender: FDA-Public Use
  Company Number: US-ABBOTT-12P-163-0903294-00

PATIENT
  Age: 45 Year
  Sex: Female

DRUGS (3)
  1. HUMIRA 40 MG/0.8 ML PEN [Suspect]
     Indication: PSORIATIC ARTHROPATHY
     Dates: start: 20120209
  2. LYRICA [Concomitant]
     Indication: ANKYLOSING SPONDYLITIS
     Dosage: 40 MG DAILY
  3. ALEVE [Concomitant]
     Indication: PAIN

REACTIONS (3)
  - Injection site haemorrhage [Recovered/Resolved]
  - Wrong technique in drug usage process [Unknown]
  - Drug dose omission [Unknown]
